FAERS Safety Report 9960891 (Version 1)
Quarter: 2014Q1

REPORT INFORMATION
  Report Type: Spontaneous
  Country: US (occurrence: None)
  Receive Date: 20140127
  Receipt Date: 20140127
  Transmission Date: 20141002
  Serious: Yes (Hospitalization)
  Sender: FDA-Public Use
  Company Number: 1270184

PATIENT
  Age: 55 Year
  Sex: Female

DRUGS (2)
  1. ALTEPLASE [Suspect]
     Indication: CEREBROVASCULAR ACCIDENT
     Route: 040
     Dates: start: 20130809, end: 20130809
  2. LISINOPRIL (LISINOPRIL) [Concomitant]

REACTIONS (2)
  - Swollen tongue [None]
  - Angioedema [None]
